FAERS Safety Report 7441074-3 (Version None)
Quarter: 2011Q2

REPORT INFORMATION
  Report Type: 
  Country: None (occurrence: None)
  Receive Date: 20110427
  Receipt Date: 20110418
  Transmission Date: 20111010
  Serious: Yes (Other)
  Sender: FDA-Public Use
  Company Number: BR-GENENTECH-303794

PATIENT
  Sex: Female
  Weight: 67 kg

DRUGS (9)
  1. TIORFAN [Concomitant]
     Indication: PRODUCT USED FOR UNKNOWN INDICATION
     Dosage: UNK
  2. RITUXIMAB [Suspect]
     Dosage: 1000 MG/ML, Q15D
     Route: 042
     Dates: start: 20100128, end: 20100701
  3. ARADOIS [Concomitant]
     Indication: PRODUCT USED FOR UNKNOWN INDICATION
     Dosage: 50 MG, UNK
  4. RITUXIMAB [Suspect]
     Dosage: 1000 MG/ML, Q15D
     Route: 042
     Dates: start: 20080301, end: 20080301
  5. RITUXIMAB [Suspect]
     Indication: RHEUMATOID ARTHRITIS
     Dosage: 1000 MG/ML, Q15D
     Route: 042
     Dates: start: 20070901, end: 20070901
  6. ARAVA [Suspect]
     Indication: PRODUCT USED FOR UNKNOWN INDICATION
     Dosage: 20 MG, UNK
     Route: 065
  7. RITUXIMAB [Suspect]
     Dosage: UNK MG/ML, Q15D
     Route: 042
     Dates: end: 20100211
  8. RITUXIMAB [Suspect]
     Dosage: UNK MG/ML, Q15D
     Route: 042
     Dates: start: 20100101
  9. PURAN T4 [Concomitant]
     Indication: PRODUCT USED FOR UNKNOWN INDICATION
     Dosage: 150 A?G, UNK

REACTIONS (13)
  - WEIGHT INCREASED [None]
  - WEIGHT DECREASED [None]
  - ALOPECIA [None]
  - FALL [None]
  - SPINAL DISORDER [None]
  - JOINT SWELLING [None]
  - PAIN [None]
  - JOINT RANGE OF MOTION DECREASED [None]
  - HEADACHE [None]
  - HYPOAESTHESIA [None]
  - TUBERCULOSIS [None]
  - BONE DISORDER [None]
  - ARTHRALGIA [None]
